FAERS Safety Report 12445148 (Version 1)
Quarter: 2016Q2

REPORT INFORMATION
  Report Type: Spontaneous
  Country: IT (occurrence: IT)
  Receive Date: 20160607
  Receipt Date: 20160607
  Transmission Date: 20160815
  Serious: Yes (Death, Other)
  Sender: FDA-Public Use
  Company Number: IT-TEVA-666005ACC

PATIENT

DRUGS (2)
  1. AIRTAL [Suspect]
     Active Substance: ACECLOFENAC
     Route: 065
  2. DICLOFENAC [Suspect]
     Active Substance: DICLOFENAC
     Route: 065

REACTIONS (4)
  - Cardiovascular disorder [Unknown]
  - Myocardial infarction [Fatal]
  - Sudden cardiac death [Fatal]
  - Cardiac failure [Unknown]
